FAERS Safety Report 8914038 (Version 2)
Quarter: 2013Q1

REPORT INFORMATION
  Report Type: Spontaneous
  Country: US (occurrence: None)
  Receive Date: 20121114
  Receipt Date: 20121204
  Transmission Date: 20140127
  Serious: Yes (Other)
  Sender: FDA-Public Use
  Company Number: DSA_60091_2012

PATIENT
  Age: 64 Year
  Sex: Female

DRUGS (1)
  1. XENAZINE 25 MG (NOT SPECIFIED) [Suspect]
     Indication: DYSKINESIA
     Route: 048
     Dates: start: 20101001

REACTIONS (3)
  - Depression [None]
  - Tardive dyskinesia [None]
  - Bipolar disorder [None]
